FAERS Safety Report 7277435-5 (Version None)
Quarter: 2011Q1

REPORT INFORMATION
  Report Type: 
  Country: None (occurrence: None)
  Receive Date: 20110207
  Receipt Date: 20110128
  Transmission Date: 20110831
  Serious: No
  Sender: FDA-Public Use
  Company Number: US-NOVOPROD-312946

PATIENT
  Sex: Female

DRUGS (2)
  1. VICTOZA [Suspect]
     Dosage: 1.8 MG, QD
     Route: 058
     Dates: end: 20100820
  2. VICTOZA [Suspect]
     Indication: PRODUCT USED FOR UNKNOWN INDICATION
     Dosage: UNK
     Route: 058
     Dates: start: 20100323

REACTIONS (2)
  - BLOOD AMYLASE INCREASED [None]
  - ABDOMINAL PAIN [None]
